FAERS Safety Report 19320856 (Version 1)
Quarter: 2021Q2

REPORT INFORMATION
  Report Type: Spontaneous
  Country: US (occurrence: US)
  Receive Date: 20210528
  Receipt Date: 20210528
  Transmission Date: 20210717
  Serious: Yes (Other)
  Sender: FDA-Public Use
  Company Number: None

PATIENT
  Age: 47 Year
  Sex: Female
  Weight: 73.8 kg

DRUGS (1)
  1. FERRLECIT [Suspect]
     Active Substance: SODIUM FERRIC GLUCONATE COMPLEX
     Indication: IRON DEFICIENCY ANAEMIA
     Dates: start: 20210521, end: 20210521

REACTIONS (7)
  - Urticaria [None]
  - Chest discomfort [None]
  - No reaction on previous exposure to drug [None]
  - Product quality issue [None]
  - Joint stiffness [None]
  - Hypersensitivity [None]
  - Abdominal pain upper [None]

NARRATIVE: CASE EVENT DATE: 20210521
